FAERS Safety Report 7556546-0 (Version None)
Quarter: 2011Q2

REPORT INFORMATION
  Report Type: 
  Country: None (occurrence: None)
  Receive Date: 20110616
  Receipt Date: 20110616
  Transmission Date: 20111010
  Serious: No
  Sender: FDA-Public Use
  Company Number: None

PATIENT
  Age: 24 Year
  Sex: Male

DRUGS (1)
  1. BACTRIM [Suspect]
     Dates: start: 20100225, end: 20100311

REACTIONS (13)
  - ULTRASOUND ABDOMEN ABNORMAL [None]
  - ASPARTATE AMINOTRANSFERASE INCREASED [None]
  - MYALGIA [None]
  - TONGUE DISORDER [None]
  - SPLENOMEGALY [None]
  - NEUROSYPHILIS [None]
  - ASTHENIA [None]
  - DIZZINESS [None]
  - SECRETION DISCHARGE [None]
  - HEPATITIS B SURFACE ANTIGEN [None]
  - HEPATITIS B ANTIBODY POSITIVE [None]
  - LIVER INJURY [None]
  - ALANINE AMINOTRANSFERASE INCREASED [None]
